FAERS Safety Report 22270148 (Version 1)
Quarter: 2023Q2

REPORT INFORMATION
  Report Type: Spontaneous
  Country: US (occurrence: US)
  Receive Date: 20230501
  Receipt Date: 20230501
  Transmission Date: 20230721
  Serious: No
  Sender: FDA-Public Use
  Company Number: US-PFIZER INC-202300173405

PATIENT
  Age: 49 Year
  Sex: Female
  Weight: 55.79 kg

DRUGS (3)
  1. DEPO-ESTRADIOL [Suspect]
     Active Substance: ESTRADIOL CYPIONATE
     Indication: Hormone replacement therapy
     Dosage: UNK
  2. DEPO-ESTRADIOL [Suspect]
     Active Substance: ESTRADIOL CYPIONATE
     Indication: Hysterectomy
  3. ESTRADIOL [Concomitant]
     Active Substance: ESTRADIOL
     Dosage: 1 GRAM EVERY DAY
     Route: 061

REACTIONS (7)
  - Recalled product administered [Unknown]
  - Migraine [Unknown]
  - Mood swings [Unknown]
  - Loss of libido [Unknown]
  - Irritability [Unknown]
  - Headache [Unknown]
  - Hot flush [Unknown]
